FAERS Safety Report 14640734 (Version 1)
Quarter: 2018Q1

REPORT INFORMATION
  Report Type: Spontaneous
  Country: US (occurrence: US)
  Receive Date: 20180315
  Receipt Date: 20180315
  Transmission Date: 20180509
  Serious: No
  Sender: FDA-Public Use
  Company Number: US-GLAXOSMITHKLINE-US2018043200

PATIENT
  Age: 35 Year
  Sex: Female

DRUGS (1)
  1. FLOVENT DISKUS [Suspect]
     Active Substance: FLUTICASONE PROPIONATE
     Indication: EOSINOPHILIC OESOPHAGITIS
     Dosage: 2 PUFF(S), BID
     Route: 048
     Dates: start: 20180311

REACTIONS (5)
  - Product use in unapproved indication [Unknown]
  - Product use complaint [Not Recovered/Not Resolved]
  - Cough [Not Recovered/Not Resolved]
  - Exposure via ingestion [Unknown]
  - Off label use [Unknown]

NARRATIVE: CASE EVENT DATE: 20180311
